FAERS Safety Report 7360521-9 (Version None)
Quarter: 2011Q1

REPORT INFORMATION
  Report Type: 
  Country: None (occurrence: None)
  Receive Date: 20110310
  Receipt Date: 20110223
  Transmission Date: 20110831
  Serious: Yes (Hospitalization)
  Sender: FDA-Public Use
  Company Number: 2011MA001713

PATIENT
  Age: 34 Year
  Sex: Female

DRUGS (2)
  1. LEVOTHYROXINE SODIUM [Concomitant]
  2. PROPYLTHIOURACIL [Suspect]
     Indication: BASEDOW'S DISEASE
     Dosage: 100 MG;TID;
     Dates: start: 20080101, end: 20080101

REACTIONS (10)
  - PHARYNGEAL ERYTHEMA [None]
  - STREPTOCOCCUS TEST POSITIVE [None]
  - AGRANULOCYTOSIS [None]
  - OROPHARYNGEAL PAIN [None]
  - PYREXIA [None]
  - TREMOR [None]
  - WHITE BLOOD CELL DISORDER [None]
  - STRESS [None]
  - DEHYDRATION [None]
  - INSOMNIA [None]
